FAERS Safety Report 5611950-2 (Version None)
Quarter: 2008Q1

REPORT INFORMATION
  Report Type: 
  Country: None (occurrence: None)
  Receive Date: 20080204
  Receipt Date: 20080128
  Transmission Date: 20080703
  Serious: Yes (Hospitalization)
  Sender: FDA-Public Use
  Company Number: PHHY2008JP01133

PATIENT
  Age: 78 Year
  Sex: Male

DRUGS (2)
  1. PREDONINE [Concomitant]
     Indication: SKIN DISORDER
  2. COMTAN [Suspect]
     Indication: PARKINSON'S DISEASE
     Dosage: 100 MG, BID
     Route: 048
     Dates: start: 20071201

REACTIONS (1)
  - CEREBRAL INFARCTION [None]
